FAERS Safety Report 8326745-9 (Version None)
Quarter: 2012Q2

REPORT INFORMATION
  Report Type: 
  Country: None (occurrence: None)
  Receive Date: 20120501
  Receipt Date: 20120426
  Transmission Date: 20120825
  Serious: Yes (Other)
  Sender: FDA-Public Use
  Company Number: PHHY2012TN035780

PATIENT
  Age: 28 Year
  Sex: Male

DRUGS (5)
  1. PYRAZINAMIDE [Concomitant]
     Dosage: UNK UKN, UNK
  2. ISONIAZID [Suspect]
     Dosage: 3 MG/KG, QD
  3. RIFAMPICIN [Concomitant]
     Dosage: UNK UKN, UNK
  4. STREPTOMYCIN [Concomitant]
     Dosage: UNK UKN, UNK
  5. ISONIAZID [Suspect]
     Indication: PULMONARY TUBERCULOSIS
     Dosage: 5 MG/KG, QD

REACTIONS (9)
  - MYALGIA [None]
  - MYOKYMIA [None]
  - ERYTHEMA [None]
  - MUSCULAR WEAKNESS [None]
  - ARTHRALGIA [None]
  - MUSCLE CONTRACTIONS INVOLUNTARY [None]
  - MYOPATHY [None]
  - PAIN IN EXTREMITY [None]
  - MUSCLE HYPERTROPHY [None]
